FAERS Safety Report 25978119 (Version 1)
Quarter: 2025Q4

REPORT INFORMATION
  Report Type: Spontaneous
  Country: US (occurrence: US)
  Receive Date: 20251030
  Receipt Date: 20251030
  Transmission Date: 20260117
  Serious: No
  Sender: GILEAD
  Company Number: US-GILEAD-2025-0733812

PATIENT
  Age: 86 Year
  Sex: Female

DRUGS (1)
  1. LIVDELZI [Suspect]
     Active Substance: SELADELPAR LYSINE
     Indication: Primary biliary cholangitis
     Dosage: UNK
     Route: 065
     Dates: start: 20251021

REACTIONS (4)
  - Sleep disorder [Recovered/Resolved]
  - Fatigue [Not Recovered/Not Resolved]
  - Headache [Unknown]
  - Dizziness [Unknown]
